FAERS Safety Report 20820316 (Version 4)
Quarter: 2024Q1

REPORT INFORMATION
  Report Type: Spontaneous
  Country: US (occurrence: US)
  Receive Date: 20220512
  Receipt Date: 20240320
  Transmission Date: 20240410
  Serious: No
  Sender: FDA-Public Use
  Company Number: US-PFIZER INC-202200334971

PATIENT
  Age: 73 Year
  Sex: Female
  Weight: 45.351 kg

DRUGS (2)
  1. XELJANZ [Suspect]
     Active Substance: TOFACITINIB CITRATE
     Dosage: 5 MG
  2. KETAMINE [Concomitant]
     Active Substance: KETAMINE

REACTIONS (3)
  - Illness [Unknown]
  - Ulcer [Unknown]
  - Abdominal discomfort [Recovering/Resolving]
